FAERS Safety Report 24446347 (Version 1)
Quarter: 2024Q4

REPORT INFORMATION
  Report Type: Spontaneous
  Country: BE (occurrence: BE)
  Receive Date: 20241016
  Receipt Date: 20241016
  Transmission Date: 20250114
  Serious: Yes (Other)
  Sender: GLAND PHARMA LTD
  Company Number: BE-GLANDPHARMA-BE-2024GLNLIT00856

PATIENT

DRUGS (1)
  1. ROCURONIUM BROMIDE [Suspect]
     Active Substance: ROCURONIUM BROMIDE
     Indication: COVID-19
     Route: 065

REACTIONS (2)
  - Pupil fixed [Recovered/Resolved]
  - Product use in unapproved indication [Unknown]
